FAERS Safety Report 5065199-5 (Version None)
Quarter: 2006Q3

REPORT INFORMATION
  Report Type: 
  Country: None (occurrence: None)
  Receive Date: 20060703
  Receipt Date: 20050503
  Transmission Date: 20061208
  Serious: Yes (Disabling, Other)
  Sender: FDA-Public Use
  Company Number: WAES 0505USA00452

PATIENT
  Age: 65 Year
  Sex: Female
  Weight: 82.5547 kg

DRUGS (4)
  1. HYZAAR [Suspect]
     Indication: HYPERTENSION
     Dosage: 100/25 MG/DAILY/PO
     Route: 048
     Dates: start: 19981105, end: 20050214
  2. DARVOCET [Concomitant]
  3. TOPROL-XL [Concomitant]
  4. MECLIZINE [Concomitant]

REACTIONS (1)
  - PHOTOSENSITIVITY REACTION [None]
